FAERS Safety Report 20908148 (Version 1)
Quarter: 2022Q2

REPORT INFORMATION
  Report Type: Report from Study
  Country: GB (occurrence: GB)
  Receive Date: 20220602
  Receipt Date: 20220602
  Transmission Date: 20220721
  Serious: Yes (Death, Other)
  Sender: FDA-Public Use
  Company Number: GB-CELGENE-GBR-20210106111

PATIENT
  Sex: Female

DRUGS (3)
  1. LENALIDOMIDE [Suspect]
     Active Substance: LENALIDOMIDE
     Indication: Plasma cell myeloma
     Route: 048
     Dates: start: 20120523, end: 20190222
  2. DEXAMETHASONE [Suspect]
     Active Substance: DEXAMETHASONE
     Indication: Plasma cell myeloma
     Dosage: FREQUENCY TEXT: AS PER PROTOCOL
     Route: 048
     Dates: start: 20120523, end: 20120901
  3. CYCLOPHOSPHAMIDE [Concomitant]
     Active Substance: CYCLOPHOSPHAMIDE
     Indication: Plasma cell myeloma
     Dosage: FREQUENCY TEXT: AS PER PROTOCOL
     Route: 048
     Dates: start: 20120523, end: 20120822

REACTIONS (1)
  - Invasive ductal breast carcinoma [Fatal]

NARRATIVE: CASE EVENT DATE: 20190118
